FAERS Safety Report 16242025 (Version 11)
Quarter: 2021Q2

REPORT INFORMATION
  Report Type: Report from Study
  Country: US (occurrence: US)
  Receive Date: 20190426
  Receipt Date: 20210402
  Transmission Date: 20210716
  Serious: Yes (Hospitalization, Other)
  Sender: FDA-Public Use
  Company Number: US-SA-2019SA109505

PATIENT
  Age: 43 Year
  Sex: Female

DRUGS (5)
  1. ALEMTUZUMAB [Suspect]
     Active Substance: ALEMTUZUMAB
     Indication: MULTIPLE SCLEROSIS
     Dosage: 12 MG, QD
     Route: 041
     Dates: start: 20190410, end: 20190412
  2. VANCOMYCIN [Suspect]
     Active Substance: VANCOMYCIN
     Indication: STAPHYLOCOCCAL INFECTION
     Dosage: UNK UNK, Q12H
     Route: 042
     Dates: start: 202010
  3. ALEMTUZUMAB [Suspect]
     Active Substance: ALEMTUZUMAB
     Dosage: 12 MG, QD
     Route: 041
     Dates: start: 20180219, end: 20180223
  4. DOXYCYCLINE. [Suspect]
     Active Substance: DOXYCYCLINE
     Indication: STAPHYLOCOCCAL INFECTION
     Dosage: UNK, PILL
     Route: 065
     Dates: start: 202011
  5. LISINOPRIL. [Concomitant]
     Active Substance: LISINOPRIL
     Indication: BLOOD PRESSURE MEASUREMENT
     Dosage: UNK UNK, UNK
     Route: 065

REACTIONS (31)
  - Somnolence [Recovered/Resolved]
  - Thyroid disorder [Not Recovered/Not Resolved]
  - Infection [Not Recovered/Not Resolved]
  - Red blood cell abnormality [Not Recovered/Not Resolved]
  - Decreased appetite [Unknown]
  - Weight decreased [Unknown]
  - Multiple sclerosis [Not Recovered/Not Resolved]
  - Anaemia [Not Recovered/Not Resolved]
  - Blood pressure decreased [Recovered/Resolved]
  - Malaise [Recovered/Resolved]
  - Staphylococcal infection [Recovered/Resolved]
  - Blood pressure increased [Not Recovered/Not Resolved]
  - Vomiting [Not Recovered/Not Resolved]
  - Unevaluable event [Unknown]
  - Vomiting [Unknown]
  - Nausea [Unknown]
  - Gastric ulcer [Recovered/Resolved]
  - Chest pain [Recovered/Resolved]
  - Asthenia [Recovered/Resolved]
  - Laboratory test abnormal [Not Recovered/Not Resolved]
  - Fatigue [Not Recovered/Not Resolved]
  - Heart rate decreased [Unknown]
  - Nausea [Not Recovered/Not Resolved]
  - Cyst [Not Recovered/Not Resolved]
  - Urticaria [Unknown]
  - Cardiac arrest [Unknown]
  - Peripheral swelling [Recovered/Resolved]
  - Dizziness [Recovered/Resolved]
  - Rash [Not Recovered/Not Resolved]
  - Poor venous access [Not Recovered/Not Resolved]
  - Migraine [Unknown]

NARRATIVE: CASE EVENT DATE: 201904
